FAERS Safety Report 7873004-4 (Version None)
Quarter: 2011Q4

REPORT INFORMATION
  Report Type: 
  Country: None (occurrence: None)
  Receive Date: 20111030
  Receipt Date: 20110425
  Transmission Date: 20120403
  Serious: No
  Sender: FDA-Public Use
  Company Number: US-AMGEN-USASP2011013632

PATIENT
  Age: 54 Year
  Sex: Female

DRUGS (1)
  1. ENBREL [Suspect]
     Indication: PSORIASIS
     Dosage: 50 MG, QWK
     Dates: start: 20101101, end: 20110201

REACTIONS (7)
  - CLAVICLE FRACTURE [None]
  - COUGH [None]
  - ACCIDENT [None]
  - PARANASAL SINUS HYPERSECRETION [None]
  - HAND FRACTURE [None]
  - RIB FRACTURE [None]
  - SINUSITIS [None]
